FAERS Safety Report 6528517-4 (Version None)
Quarter: 2010Q1

REPORT INFORMATION
  Report Type: 
  Country: None (occurrence: None)
  Receive Date: 20100106
  Receipt Date: 20091207
  Transmission Date: 20100710
  Serious: Yes (Hospitalization, Other)
  Sender: FDA-Public Use
  Company Number: PHHY2009NL56889

PATIENT
  Age: 20 Year
  Sex: Female

DRUGS (2)
  1. ARTEMETHER + BENFLUMETOL [Suspect]
  2. LUMEFANTRINE [Suspect]

REACTIONS (10)
  - ACUTE CORONARY SYNDROME [None]
  - ANGINA PECTORIS [None]
  - CHEST PAIN [None]
  - DYSPNOEA [None]
  - HYPERSENSITIVITY [None]
  - MYOCARDIAL INFARCTION [None]
  - MYOCARDITIS [None]
  - NAUSEA [None]
  - PAIN [None]
  - PYREXIA [None]
